FAERS Safety Report 4640748-7 (Version None)
Quarter: 2005Q2

REPORT INFORMATION
  Report Type: 
  Country: None (occurrence: None)
  Receive Date: 20050419
  Receipt Date: 20050408
  Transmission Date: 20051028
  Serious: Yes (Disabling, Other)
  Sender: FDA-Public Use
  Company Number: BRO-008363

PATIENT
  Age: 40 Year
  Sex: Male

DRUGS (3)
  1. IOPAMIDOL-300 [Suspect]
     Indication: COMPUTERISED TOMOGRAM
     Dosage: 100 ML, IV
     Route: 042
     Dates: start: 20050114, end: 20050114
  2. IOPAMIDOL-300 [Suspect]
     Indication: LYMPHADENITIS
     Dosage: 100 ML, IV
     Route: 042
     Dates: start: 20050114, end: 20050114
  3. FAROM (FAROPENEM SODIUM) [Concomitant]

REACTIONS (7)
  - HAEMODIALYSIS [None]
  - HYPERTENSION [None]
  - HYPERTHERMIA [None]
  - NEUROPATHY PERIPHERAL [None]
  - RENAL FAILURE ACUTE [None]
  - SHOCK [None]
  - TACHYCARDIA [None]
